FAERS Safety Report 12607947 (Version 3)
Quarter: 2016Q3

REPORT INFORMATION
  Report Type: Report from Study
  Country: US (occurrence: US)
  Receive Date: 20160729
  Receipt Date: 20160812
  Transmission Date: 20161109
  Serious: Yes (Death)
  Sender: FDA-Public Use
  Company Number: US-JNJFOC-20160724257

PATIENT
  Age: 45 Year
  Sex: Male
  Weight: 82.56 kg

DRUGS (1)
  1. USTEKINUMAB [Suspect]
     Active Substance: USTEKINUMAB
     Indication: PSORIASIS
     Route: 058
     Dates: start: 201007, end: 201106

REACTIONS (1)
  - Rectal adenocarcinoma [Fatal]

NARRATIVE: CASE EVENT DATE: 20160717
